FAERS Safety Report 8177787-8 (Version None)
Quarter: 2012Q1

REPORT INFORMATION
  Report Type: 
  Country: None (occurrence: None)
  Receive Date: 20120301
  Receipt Date: 20120227
  Transmission Date: 20120608
  Serious: Yes (Death)
  Sender: FDA-Public Use
  Company Number: US-MPIJNJ-2012-01417

PATIENT

DRUGS (1)
  1. VELCADE [Suspect]
     Indication: ACUTE GRAFT VERSUS HOST DISEASE
     Dosage: 1.3 MG/M2, CYCLIC
     Route: 040

REACTIONS (1)
  - HAEMORRHAGE [None]
